FAERS Safety Report 6453929-7 (Version None)
Quarter: 2009Q4

REPORT INFORMATION
  Report Type: 
  Country: None (occurrence: None)
  Receive Date: 20091117
  Receipt Date: 20091109
  Transmission Date: 20100525
  Serious: Yes (Other)
  Sender: FDA-Public Use
  Company Number: DSA_41990_2009

PATIENT
  Sex: Male

DRUGS (7)
  1. XENAZINE [Suspect]
     Indication: TOURETTE'S DISORDER
     Dosage: (25 MG; 1/2 TABLET Q AM, 1 TABLET AT NOON AND IN THE EVENING, ORAL ) ; (12.5 MG QD ORAL)
     Route: 048
     Dates: start: 20090601, end: 20090101
  2. XENAZINE [Suspect]
     Indication: TOURETTE'S DISORDER
     Dosage: (25 MG; 1/2 TABLET Q AM, 1 TABLET AT NOON AND IN THE EVENING, ORAL ) ; (12.5 MG QD ORAL)
     Route: 048
     Dates: start: 20090101
  3. ZOLOFT /01011402/ [Concomitant]
  4. ALLEGRA /01314202/ [Concomitant]
  5. ADVAIR DISKUS 100/50 [Concomitant]
  6. SINGULAIR /01362602/ [Concomitant]
  7. NASONEX [Concomitant]

REACTIONS (7)
  - ANXIETY [None]
  - CONDITION AGGRAVATED [None]
  - CONVULSION [None]
  - DEREALISATION [None]
  - MOOD ALTERED [None]
  - SOMNOLENCE [None]
  - TIC [None]
